FAERS Safety Report 4435031-9 (Version None)
Quarter: 2004Q3

REPORT INFORMATION
  Report Type: 
  Country: None (occurrence: None)
  Receive Date: 20040827
  Receipt Date: 20040827
  Transmission Date: 20050211
  Serious: Yes (Hospitalization, Other)
  Sender: FDA-Public Use
  Company Number: None

PATIENT
  Age: 49 Year
  Sex: Male
  Weight: 93.5 kg

DRUGS (9)
  1. EPITIFIBATIDE (INTEGRILIN) [Suspect]
     Indication: ANTIPLATELET THERAPY
     Dosage: 2 (8.5 ML BOLUSES) 5 ML/HR IV
     Route: 042
     Dates: start: 20040823, end: 20040824
  2. HEPARIN [Suspect]
     Indication: ANTICOAGULANT THERAPY
     Dosage: 4.8-4.68D UNIT
     Dates: start: 20040823
  3. FENTANYL [Concomitant]
  4. MIDAZOLAM HCL [Concomitant]
  5. NITROGLYCERIN [Concomitant]
  6. CEFAZOLIN [Concomitant]
  7. ASPIRIN [Concomitant]
  8. PEPCID [Concomitant]
  9. CLOPIDOGREL [Concomitant]

REACTIONS (1)
  - HAEMORRHAGE [None]
